FAERS Safety Report 4830766-8 (Version None)
Quarter: 2005Q4

REPORT INFORMATION
  Report Type: 
  Country: None (occurrence: None)
  Receive Date: 20051117
  Receipt Date: 20050930
  Transmission Date: 20060501
  Serious: Yes (Other)
  Sender: FDA-Public Use
  Company Number: US-MERCK-0510USA01890

PATIENT
  Age: 58 Year
  Sex: Male

DRUGS (15)
  1. VIOXX [Suspect]
     Indication: ARTHRITIS
     Route: 048
     Dates: start: 20000915, end: 20040729
  2. AUGMENTIN [Concomitant]
     Route: 065
  3. BETIMOL [Concomitant]
     Route: 065
  4. GLUCOPHAGE [Concomitant]
     Route: 065
  5. HYDROCHLOROTHIAZIDE [Concomitant]
     Route: 065
  6. IBUPROFEN [Concomitant]
     Route: 065
  7. LIPITOR [Concomitant]
     Route: 065
  8. METOPROLOL TARTRATE [Concomitant]
     Route: 065
  9. PENICILLIN V [Concomitant]
     Route: 065
  10. POTASSIUM (UNSPECIFIED) [Concomitant]
     Route: 065
  11. PRAVACHOL [Concomitant]
     Route: 065
  12. TRIMOX [Concomitant]
     Route: 065
  13. TYLENOL W/ CODEINE [Concomitant]
     Route: 065
  14. VASOTEC [Concomitant]
     Route: 065
  15. ENALAPRIL MALEATE [Concomitant]
     Route: 065

REACTIONS (1)
  - MYOCARDIAL INFARCTION [None]
